FAERS Safety Report 4972216-7 (Version None)
Quarter: 2006Q2

REPORT INFORMATION
  Report Type: 
  Country: None (occurrence: None)
  Receive Date: 20060413
  Receipt Date: 20060406
  Transmission Date: 20061013
  Serious: Yes (Hospitalization)
  Sender: FDA-Public Use
  Company Number: FR-GLAXOSMITHKLINE-B0419877A

PATIENT
  Age: 72 Year
  Sex: Female
  Weight: 35 kg

DRUGS (2)
  1. AUGMENTIN '125' [Suspect]
     Indication: COUGH
     Dosage: 3UNIT PER DAY
     Route: 048
     Dates: start: 20060103, end: 20060117
  2. PARACETAMOL [Concomitant]
     Indication: COUGH
     Dosage: 1UNIT PER DAY
     Route: 048
     Dates: end: 20060117

REACTIONS (2)
  - HEPATITIS [None]
  - HEPATOCELLULAR DAMAGE [None]
